FAERS Safety Report 8774652 (Version 2)
Quarter: 2012Q4

REPORT INFORMATION
  Report Type: 
  Country: US (occurrence: US)
  Receive Date: 20120907
  Receipt Date: 20120928
  Transmission Date: 20130627
  Serious: Yes (Hospitalization)
  Sender: FDA-Public Use
  Company Number: US-009507513-1209USA000198

PATIENT
  Age: 49 None
  Sex: Female
  Weight: 51.25 kg

DRUGS (1)
  1. VICTRELIS [Suspect]
     Indication: HEPATITIS C
     Dosage: 800 mg, tid
     Route: 048
     Dates: start: 201203, end: 20120822

REACTIONS (4)
  - Hepatic cirrhosis [Unknown]
  - Confusional state [Unknown]
  - Cognitive disorder [Unknown]
  - Weight decreased [Unknown]
